FAERS Safety Report 5323955-X (Version None)
Quarter: 2007Q2

REPORT INFORMATION
  Report Type: 
  Country: None (occurrence: None)
  Receive Date: 20070509
  Receipt Date: 20070509
  Transmission Date: 20071010
  Serious: Yes (Hospitalization)
  Sender: FDA-Public Use
  Company Number: None

PATIENT
  Sex: Female
  Weight: 78.9259 kg

DRUGS (1)
  1. GEMCITABINE [Suspect]
     Indication: CERVIX CARCINOMA
     Dosage: 623MG WEEKLY X 6 IV
     Route: 042
     Dates: start: 20070129

REACTIONS (6)
  - ABDOMINAL PAIN LOWER [None]
  - ANAEMIA [None]
  - DYSURIA [None]
  - PELVIC INFECTION [None]
  - PYREXIA [None]
  - VAGINAL HAEMORRHAGE [None]
